FAERS Safety Report 6828509-1 (Version None)
Quarter: 2010Q3

REPORT INFORMATION
  Report Type: 
  Country: None (occurrence: None)
  Receive Date: 20100709
  Receipt Date: 20100630
  Transmission Date: 20110219
  Serious: Yes (Hospitalization, Disabling, Other)
  Sender: FDA-Public Use
  Company Number: NL-ABBOTT-10P-114-0654763-00

PATIENT
  Sex: Male
  Weight: 88 kg

DRUGS (10)
  1. LUCRIN DEPOT 11.25 MG [Suspect]
     Indication: PROSTATE CANCER
     Route: 058
     Dates: start: 20081119
  2. CARBOMEER 980 EYE GEL [Concomitant]
     Indication: CATARACT OPERATION
     Dosage: 2MG/G
  3. CITALOPRAM HYDROBROMIDE [Concomitant]
     Indication: DEPRESSION
     Route: 048
  4. DEXAMETHASONE [Concomitant]
     Indication: CATARACT OPERATION
     Dosage: 1MG/ML (BASE) 10ML THREE DROPS DAILY
  5. DEXAMETHASONE [Concomitant]
     Dosage: 1MG/ML (PHOSPHATE) 0.4ML
  6. METOPROLOL [Concomitant]
     Indication: HYPERTENSION
     Route: 048
  7. OMEPRAZOLE [Concomitant]
     Indication: GASTRIC DISORDER
     Route: 048
  8. OMEPRAZOLE [Concomitant]
     Indication: PROPHYLAXIS
  9. OXAZEPAM [Concomitant]
     Indication: ANXIOLYTIC THERAPY
     Dosage: 1 TO 3 TABLET DAILY
     Route: 048
  10. TOBRAMYCINE [Concomitant]
     Indication: CATARACT OPERATION
     Dosage: 3MG/G

REACTIONS (3)
  - HOT FLUSH [None]
  - HYPERHIDROSIS [None]
  - TRANSIENT ISCHAEMIC ATTACK [None]
